FAERS Safety Report 16816338 (Version 1)
Quarter: 2019Q3

REPORT INFORMATION
  Report Type: Spontaneous
  Country: US (occurrence: US)
  Receive Date: 20190917
  Receipt Date: 20190917
  Transmission Date: 20191005
  Serious: Yes (Hospitalization, Other)
  Sender: FDA-Public Use
  Company Number: US-JNJFOC-20190909546

PATIENT
  Age: 54 Year
  Sex: Male

DRUGS (1)
  1. INVOKANA [Suspect]
     Active Substance: CANAGLIFLOZIN
     Indication: TYPE 2 DIABETES MELLITUS
     Route: 048
     Dates: start: 2016

REACTIONS (5)
  - Gangrene [Unknown]
  - Toe amputation [Unknown]
  - Renal impairment [Unknown]
  - Osteomyelitis [Unknown]
  - Skin ulcer [Unknown]

NARRATIVE: CASE EVENT DATE: 201711
